FAERS Safety Report 9287019 (Version 2)
Quarter: 2013Q2

REPORT INFORMATION
  Report Type: Spontaneous
  Country: US (occurrence: None)
  Receive Date: 20130508
  Receipt Date: 20130521
  Transmission Date: 20140414
  Serious: Yes (Hospitalization)
  Sender: FDA-Public Use
  Company Number: CABO-13002610

PATIENT
  Age: 74 Year
  Sex: Male

DRUGS (11)
  1. COMETRIQ (CABOZANTINIB) CAPSULE [Suspect]
     Indication: THYROID CANCER
     Dates: start: 20130417, end: 20130502
  2. LEVOTHYROXINE (LEVOTHYROXINE) [Concomitant]
  3. MULTIVITAMIN (MULTIVITAMIN NOS) [Concomitant]
  4. ASPIRIN (ACETYLSALICYLIC ACID) [Concomitant]
  5. DOXYCLINE (DOXYCLINE) [Concomitant]
  6. FLOMAX (TAMSULOSIN HYDROCHLORIDE) [Concomitant]
  7. LOVENOX (ENOXAPARIN SODIUM) [Concomitant]
  8. FAMOTIDINE (FAMOTIDINE) [Concomitant]
  9. TYLENOL (PARACETAMOL) [Concomitant]
  10. TESSALON (BENZONATATE) [Concomitant]
  11. COLACE [Concomitant]

REACTIONS (6)
  - Fall [None]
  - Asthenia [None]
  - Dizziness [None]
  - Flatulence [None]
  - Diarrhoea [None]
  - Nausea [None]
